FAERS Safety Report 17403123 (Version 1)
Quarter: 2020Q1

REPORT INFORMATION
  Report Type: Spontaneous
  Country: GB (occurrence: GB)
  Receive Date: 20200211
  Receipt Date: 20200211
  Transmission Date: 20200409
  Serious: Yes (Other)
  Sender: FDA-Public Use
  Company Number: GB-JNJFOC-20200151899

PATIENT
  Age: 73 Year
  Sex: Male

DRUGS (5)
  1. NAPROXEN. [Suspect]
     Active Substance: NAPROXEN
     Indication: ARTHRALGIA
     Route: 065
     Dates: start: 2016
  2. AMLODIPINE [Concomitant]
     Active Substance: AMLODIPINE BESYLATE
     Indication: HYPERTENSION
     Route: 048
     Dates: start: 2014
  3. COCODAMOL [Concomitant]
     Active Substance: ACETAMINOPHEN\CODEINE PHOSPHATE
     Dosage: 30/500 - OCCASIONAL USE; AS REQUIRED
     Route: 048
  4. BENDROFLUMETHIAZIDE [Concomitant]
     Active Substance: BENDROFLUMETHIAZIDE
     Indication: HYPERTENSION
     Route: 048
     Dates: start: 2014
  5. RIVAROXABAN [Suspect]
     Active Substance: RIVAROXABAN
     Indication: ANTICOAGULANT THERAPY
     Route: 048
     Dates: start: 201901

REACTIONS (2)
  - Drug interaction [Unknown]
  - Epistaxis [Not Recovered/Not Resolved]

NARRATIVE: CASE EVENT DATE: 20191223
